FAERS Safety Report 23066629 (Version 1)
Quarter: 2023Q4

REPORT INFORMATION
  Report Type: Spontaneous
  Country: US (occurrence: US)
  Receive Date: 20231016
  Receipt Date: 20231016
  Transmission Date: 20240109
  Serious: Yes (Hospitalization)
  Sender: FDA-Public Use
  Company Number: US-STRIDES ARCOLAB LIMITED-2023SP015453

PATIENT
  Age: 44 Year
  Sex: Male

DRUGS (1)
  1. PREDNISOLONE [Suspect]
     Active Substance: PREDNISOLONE
     Indication: Vasculitis
     Dosage: UNK
     Route: 065

REACTIONS (7)
  - Renal failure [Recovered/Resolved]
  - Respiratory syncytial virus infection [Recovered/Resolved]
  - Bronchiolitis [Recovered/Resolved]
  - Atypical mycobacterial infection [Recovered/Resolved]
  - Disease progression [Recovered/Resolved]
  - Sepsis [Recovered/Resolved]
  - Bacteraemia [Recovered/Resolved]
